FAERS Safety Report 24385514 (Version 2)
Quarter: 2024Q4

REPORT INFORMATION
  Report Type: Spontaneous
  Country: US (occurrence: US)
  Receive Date: 20241001
  Receipt Date: 20241201
  Transmission Date: 20250115
  Serious: No
  Sender: SANOFI AVENTIS
  Company Number: US-SA-2024SA276890

PATIENT
  Age: 5 Year
  Sex: Male

DRUGS (7)
  1. DUPIXENT [Suspect]
     Active Substance: DUPILUMAB
     Indication: Asthma
     Dosage: 300 MG, Q4W
     Route: 058
     Dates: start: 20240812
  2. FLONASE ALLERGY RELIEF [Concomitant]
     Active Substance: FLUTICASONE PROPIONATE
  3. ALBUTEROL SULFATE [Concomitant]
     Active Substance: ALBUTEROL SULFATE
  4. ZYRTEC [Concomitant]
     Active Substance: CETIRIZINE HYDROCHLORIDE
  5. SINGULAIR [Concomitant]
     Active Substance: MONTELUKAST SODIUM
  6. BREYNA [Concomitant]
     Active Substance: BUDESONIDE\FORMOTEROL FUMARATE
  7. PREDNISONE [Concomitant]
     Active Substance: PREDNISONE

REACTIONS (7)
  - Nasal disorder [Unknown]
  - Influenza [Recovering/Resolving]
  - Lethargy [Recovering/Resolving]
  - Cough [Recovering/Resolving]
  - Eye pruritus [Unknown]
  - Condition aggravated [Unknown]
  - Asthma [Recovering/Resolving]

NARRATIVE: CASE EVENT DATE: 20240101
